FAERS Safety Report 11166959 (Version 1)
Quarter: 2015Q2

REPORT INFORMATION
  Report Type: Spontaneous
  Country: DK (occurrence: None)
  Receive Date: 20150603
  Receipt Date: 20150603
  Transmission Date: 20150821
  Serious: Yes (Other)
  Sender: FDA-Public Use
  Company Number: 2015DEPDK00627

PATIENT
  Age: 50 Year

DRUGS (5)
  1. DEXAMETHASONE (DEXAMETHASONE SODIUM PHOSPHATE) [Concomitant]
  2. DEPOCYTE [Suspect]
     Active Substance: CYTARABINE
     Indication: CENTRAL NERVOUS SYSTEM LYMPHOMA
     Dosage: 50 MG, DAY 2, TREATMENT PHASE A1, INTRATHECAL
     Route: 037
  3. RITUXIMAB [Concomitant]
     Active Substance: RITUXIMAB
  4. METHOTREXATE (METHOTREXATE SODIUM) [Concomitant]
     Active Substance: METHOTREXATE SODIUM
  5. IFOSAMIDE [Concomitant]
     Active Substance: IFOSFAMIDE

REACTIONS (4)
  - Headache [None]
  - Arachnoiditis [None]
  - Photophobia [None]
  - Tremor [None]
